FAERS Safety Report 7400080-5 (Version None)
Quarter: 2011Q2

REPORT INFORMATION
  Report Type: 
  Country: None (occurrence: None)
  Receive Date: 20110407
  Receipt Date: 20110331
  Transmission Date: 20111010
  Serious: Yes (Hospitalization)
  Sender: FDA-Public Use
  Company Number: NL-AMGEN-NLDNI2011017283

PATIENT
  Age: 67 Year
  Sex: Female

DRUGS (10)
  1. ZOMETA [Concomitant]
     Indication: BREAST CANCER
     Dosage: 4 MG, UNK
     Route: 042
     Dates: start: 20110110
  2. CALCIUM CARBONATE [Concomitant]
     Dosage: UNK
     Dates: start: 20110203
  3. METOCLOPRAMIDE [Concomitant]
     Dosage: 10 MG, PRN
     Dates: start: 20110210
  4. LEXOTANIL [Concomitant]
     Dosage: UNK
     Dates: start: 20110210
  5. CYCLOPHOSPHAMIDE [Concomitant]
     Indication: BREAST CANCER
     Dosage: 715 MG, UNK
     Route: 042
     Dates: start: 20110210
  6. PEGFILGRASTIM [Suspect]
     Indication: PROPHYLAXIS
  7. TAXOTERE [Concomitant]
     Indication: BREAST CANCER
     Dosage: 107 MG, UNK
     Dates: start: 20110210
  8. ONDANSETRON [Concomitant]
  9. ADRIAMYCIN PFS [Concomitant]
     Indication: BREAST CANCER
     Dosage: 72 MG, Q3WK
     Route: 042
     Dates: start: 20110210
  10. DEXAMETHASONE [Concomitant]

REACTIONS (1)
  - CHEST PAIN [None]
